FAERS Safety Report 5211207-8 (Version None)
Quarter: 2006Q4

REPORT INFORMATION
  Report Type: 
  Country: None (occurrence: None)
  Receive Date: 20061114
  Receipt Date: 20060911
  Transmission Date: 20070319
  Serious: No
  Sender: FDA-Public Use
  Company Number: S06-USA-03657-01

PATIENT
  Age: 68 Year
  Sex: Male

DRUGS (8)
  1. NAMENDA [Suspect]
     Indication: DEMENTIA
     Dosage: 5 MG QD PO
     Route: 048
     Dates: start: 20060501, end: 20060101
  2. NAMENDA [Suspect]
     Indication: DEMENTIA
     Dosage: 5 MG BID PO
     Route: 048
     Dates: start: 20060101, end: 20060101
  3. NAMENDA [Suspect]
     Indication: DEMENTIA
     Dosage: 15 MG QD PO
     Route: 048
     Dates: start: 20060101, end: 20060101
  4. NAMENDA [Suspect]
     Indication: DEMENTIA
     Dosage: 10 MG BID PO
     Route: 048
     Dates: start: 20060101
  5. COMTAN [Suspect]
     Indication: PARKINSON'S DISEASE
     Dosage: 200 MG QD
     Dates: start: 20060501
  6. SINEMET [Concomitant]
  7. COUMADIN [Concomitant]
  8. ZOLOFT [Concomitant]

REACTIONS (3)
  - CONFUSIONAL STATE [None]
  - HALLUCINATION [None]
  - HYPERHIDROSIS [None]
